FAERS Safety Report 8438780-0 (Version None)
Quarter: 2012Q2

REPORT INFORMATION
  Report Type: 
  Country: None (occurrence: None)
  Receive Date: 20120607
  Receipt Date: 20120529
  Transmission Date: 20120825
  Serious: Yes (Hospitalization)
  Sender: FDA-Public Use
  Company Number: 2012SP019550

PATIENT
  Age: 22 Year
  Sex: Female
  Weight: 110.2241 kg

DRUGS (7)
  1. IMPLANON [Suspect]
     Indication: PRODUCT USED FOR UNKNOWN INDICATION
     Dosage: SBDE
     Route: 059
     Dates: start: 20111122, end: 20120312
  2. PROAIR HFA [Concomitant]
  3. IRON [Concomitant]
  4. MULTIPLE VITAMINS [Concomitant]
  5. MINERAL TAB [Concomitant]
  6. NUVARING [Suspect]
     Indication: PRODUCT USED FOR UNKNOWN INDICATION
     Dosage: VAG
     Route: 067
     Dates: start: 20120312
  7. ASCORBIC ACID [Concomitant]

REACTIONS (11)
  - MENORRHAGIA [None]
  - MENSTRUATION IRREGULAR [None]
  - METRORRHAGIA [None]
  - VAGINAL HAEMORRHAGE [None]
  - THROMBOSIS [None]
  - DYSFUNCTIONAL UTERINE BLEEDING [None]
  - UTERINE LEIOMYOMA [None]
  - NEOPLASM MALIGNANT [None]
  - DYSMENORRHOEA [None]
  - HYPERPLASIA [None]
  - POLYP [None]
